FAERS Safety Report 6305393-6 (Version None)
Quarter: 2009Q3

REPORT INFORMATION
  Report Type: 
  Country: None (occurrence: None)
  Receive Date: 20090811
  Receipt Date: 20090728
  Transmission Date: 20100115
  Serious: Yes (Hospitalization)
  Sender: FDA-Public Use
  Company Number: BE-MYLANLABS-2009S1013294

PATIENT
  Age: 54 Year
  Sex: Female

DRUGS (4)
  1. DICLOFENAC [Suspect]
     Indication: PAIN IN EXTREMITY
     Dates: start: 20080101
  2. TENOFOVIR DISOPROXIL FUMARATE [Interacting]
     Indication: HIV INFECTION
     Dosage: 300 MG/DAY
  3. KALETRA                            /01506501/ [Concomitant]
     Indication: HIV INFECTION
     Dosage: LOPINAVIR/RITONAVIR 133/33MG PER DAY
  4. LAMIVUDINE [Concomitant]
     Indication: HIV INFECTION
     Dosage: 300 MG/DAY
     Dates: start: 20040101

REACTIONS (3)
  - DRUG INTERACTION [None]
  - RENAL FAILURE ACUTE [None]
  - RENAL TUBULAR DISORDER [None]
